FAERS Safety Report 18718289 (Version 1)
Quarter: 2021Q1

REPORT INFORMATION
  Report Type: Spontaneous
  Country: US (occurrence: US)
  Receive Date: 20210108
  Receipt Date: 20210108
  Transmission Date: 20210419
  Serious: No
  Sender: FDA-Public Use
  Company Number: US-AMNEAL PHARMACEUTICALS-2020-AMRX-00896

PATIENT
  Age: 25 Year
  Sex: Female

DRUGS (6)
  1. VITAMIN D [ERGOCALCIFEROL] [Concomitant]
     Active Substance: ERGOCALCIFEROL
     Indication: SUPPLEMENTATION THERAPY
     Dosage: 1 DOSAGE FORM, DAILY
     Route: 048
     Dates: start: 20180403
  2. ACTIVELLA [Suspect]
     Active Substance: ESTRADIOL\NORETHINDRONE ACETATE
     Indication: ENDOMETRIOSIS
     Dosage: 1 TABLETS, DAILY
     Route: 048
     Dates: start: 20180312, end: 20190206
  3. ACTIVELLA [Suspect]
     Active Substance: ESTRADIOL\NORETHINDRONE ACETATE
     Dosage: 1 TABLETS, DAILY
     Route: 048
     Dates: start: 20190206, end: 20190724
  4. CYTOTEC [Concomitant]
     Active Substance: MISOPROSTOL
     Indication: BIOPSY ENDOMETRIUM
     Dosage: 300 MICROGRAM, DAILY
     Route: 048
     Dates: start: 20190205, end: 20190206
  5. ELAGOLIX [Suspect]
     Active Substance: ELAGOLIX
     Indication: ENDOMETRIOSIS
     Dosage: 2 DOSAGE FORM, DAILY
     Route: 048
     Dates: start: 20180312, end: 20190206
  6. ELAGOLIX [Suspect]
     Active Substance: ELAGOLIX
     Dosage: 2 DOSAGE FORM, DAILY
     Route: 048
     Dates: start: 20190206, end: 20190724

REACTIONS (1)
  - Maternal exposure during pregnancy [Unknown]
